FAERS Safety Report 8152344-8 (Version None)
Quarter: 2012Q1

REPORT INFORMATION
  Report Type: 
  Country: None (occurrence: None)
  Receive Date: 20120221
  Receipt Date: 20120208
  Transmission Date: 20120608
  Serious: Yes (Hospitalization, Other)
  Sender: FDA-Public Use
  Company Number: US-JNJFOC-20120205077

PATIENT
  Sex: Female
  Weight: 96.16 kg

DRUGS (6)
  1. INDOCINE [Concomitant]
     Indication: JOINT SWELLING
     Route: 048
  2. REMICADE [Suspect]
     Indication: PSORIASIS
     Route: 042
  3. REMICADE [Suspect]
     Route: 042
     Dates: start: 20090101, end: 20101101
  4. ESTROGEN/METHYLTESTOSTERONE [Concomitant]
     Indication: HORMONE REPLACEMENT THERAPY
     Route: 048
     Dates: start: 19920101
  5. REMICADE [Suspect]
     Route: 042
     Dates: start: 20110801
  6. REMICADE [Suspect]
     Route: 042
     Dates: start: 20120207

REACTIONS (9)
  - ARTHRALGIA [None]
  - PANCREATIC CYST [None]
  - PSORIASIS [None]
  - PANCREATITIS [None]
  - PAIN IN EXTREMITY [None]
  - SKIN EXFOLIATION [None]
  - SCAB [None]
  - DRUG INEFFECTIVE [None]
  - SKIN BURNING SENSATION [None]
